FAERS Safety Report 17884701 (Version 1)
Quarter: 2020Q2

REPORT INFORMATION
  Report Type: Spontaneous
  Country: US (occurrence: US)
  Receive Date: 20200611
  Receipt Date: 20200611
  Transmission Date: 20200714
  Serious: Yes (Other)
  Sender: FDA-Public Use
  Company Number: US-PFIZER INC-2020221872

PATIENT

DRUGS (4)
  1. MITOMYCIN. [Suspect]
     Active Substance: MITOMYCIN
     Indication: HEPATIC CANCER
     Dosage: UNK, ACCUMULATED DOSE (15 MG) TRANSTEMORAL HEPATIC ARTERIAL INFUSION
     Dates: start: 19800706, end: 19800706
  2. FLUOROURACIL. [Suspect]
     Active Substance: FLUOROURACIL
     Indication: HEPATIC CANCER
     Dosage: UNK ACCUMULATED DOSE (27,500 MG) TRANSTEMORAL HEPATIC ARTERIAL INFUSION
     Dates: start: 19800603, end: 19800805
  3. DOXORUBICIN HCL [Suspect]
     Active Substance: DOXORUBICIN HYDROCHLORIDE
     Indication: HEPATIC CANCER
     Dosage: UNK ACCUMULATED DOSE (75MG) TRANSTEMORAL HEPATIC ARTERIAL INFUSION
     Dates: start: 19800706, end: 19800706
  4. VELBAN [Suspect]
     Active Substance: VINBLASTINE SULFATE
     Indication: HEPATIC CANCER
     Dosage: UNK (ACCUMULATED DOSE: 15 MG) TRANSTEMORAL HEPATIC ARTERIAL INFUSION
     Dates: start: 19800731, end: 19800805

REACTIONS (1)
  - Peptic ulcer [Unknown]
